FAERS Safety Report 4470957-1 (Version None)
Quarter: 2004Q4

REPORT INFORMATION
  Report Type: 
  Country: None (occurrence: None)
  Receive Date: 20041011
  Receipt Date: 20040930
  Transmission Date: 20050328
  Serious: Yes (Death)
  Sender: FDA-Public Use
  Company Number: US-JNJFOC-20041000632

PATIENT
  Age: 69 Year
  Sex: Male

DRUGS (2)
  1. DURAGESIC [Suspect]
     Route: 062
     Dates: end: 20040313
  2. DURAGESIC [Suspect]
     Route: 062
     Dates: end: 20040313

REACTIONS (3)
  - ANALGESIC DRUG LEVEL INCREASED [None]
  - DRUG TOLERANCE DECREASED [None]
  - SKIN IRRITATION [None]
